FAERS Safety Report 8576639-9 (Version None)
Quarter: 2012Q3

REPORT INFORMATION
  Report Type: 
  Country: None (occurrence: None)
  Receive Date: 20120807
  Receipt Date: 20120726
  Transmission Date: 20120928
  Serious: No
  Sender: FDA-Public Use
  Company Number: US-ASTRAZENECA-2012SE53469

PATIENT
  Age: 47 Year
  Sex: Female
  Weight: 89.8 kg

DRUGS (2)
  1. NEXIUM [Suspect]
     Indication: GASTROOESOPHAGEAL REFLUX DISEASE
     Route: 048
     Dates: start: 20120101
  2. NEXIUM [Suspect]
     Indication: ULCER
     Route: 048
     Dates: start: 20120101

REACTIONS (2)
  - INTENTIONAL DRUG MISUSE [None]
  - ALOPECIA [None]
